FAERS Safety Report 10668432 (Version 1)
Quarter: 2014Q4

REPORT INFORMATION
  Report Type: Spontaneous
  Country: US (occurrence: US)
  Receive Date: 20141222
  Receipt Date: 20141222
  Transmission Date: 20150529
  Serious: No
  Sender: FDA-Public Use
  Company Number: US-TEVA-530431USA

PATIENT
  Age: 29 Year
  Sex: Female
  Weight: 63.11 kg

DRUGS (1)
  1. PARAGARD T380A [Suspect]
     Active Substance: COPPER
     Indication: POST COITAL CONTRACEPTION
     Route: 015
     Dates: start: 20141217, end: 20141217

REACTIONS (2)
  - Discomfort [Recovered/Resolved]
  - Pain [Recovered/Resolved]

NARRATIVE: CASE EVENT DATE: 20141217
